FAERS Safety Report 16204766 (Version 2)
Quarter: 2019Q3

REPORT INFORMATION
  Report Type: Spontaneous
  Country: US (occurrence: US)
  Receive Date: 20190416
  Receipt Date: 20190805
  Transmission Date: 20191004
  Serious: Yes (Death, Other)
  Sender: FDA-Public Use
  Company Number: US-ASTRAZENECA-2019SE53084

PATIENT
  Sex: Female

DRUGS (38)
  1. PROTONIX [Suspect]
     Active Substance: PANTOPRAZOLE SODIUM
     Indication: GASTROOESOPHAGEAL REFLUX DISEASE
     Dosage: 40.0MG UNKNOWN
     Route: 065
     Dates: start: 2002
  2. PRAVASTATIN SODIUM. [Concomitant]
     Active Substance: PRAVASTATIN SODIUM
     Indication: BLOOD CHOLESTEROL INCREASED
  3. LANTUS [Concomitant]
     Active Substance: INSULIN GLARGINE
  4. RENVELA [Concomitant]
     Active Substance: SEVELAMER CARBONATE
  5. METOLAZONE. [Concomitant]
     Active Substance: METOLAZONE
  6. OMEPRAZOLE. [Suspect]
     Active Substance: OMEPRAZOLE
     Indication: GASTROOESOPHAGEAL REFLUX DISEASE
     Dosage: 40.0MG UNKNOWN
     Route: 065
     Dates: start: 2018
  7. LIDOCAINE. [Concomitant]
     Active Substance: LIDOCAINE
  8. METHYLPREDNISOLONE. [Concomitant]
     Active Substance: METHYLPREDNISOLONE
  9. HUMALOG [Concomitant]
     Active Substance: INSULIN LISPRO
  10. AMLODIPINE BESYLATE. [Concomitant]
     Active Substance: AMLODIPINE BESYLATE
  11. AZELASTINE. [Concomitant]
     Active Substance: AZELASTINE HYDROCHLORIDE
  12. FLUTICASONE PROPIONATE. [Concomitant]
     Active Substance: FLUTICASONE PROPIONATE
  13. KLOR-CON [Concomitant]
     Active Substance: POTASSIUM CHLORIDE
  14. LOPERAMIDE [Concomitant]
     Active Substance: LOPERAMIDE
  15. CLONIDINE. [Concomitant]
     Active Substance: CLONIDINE
  16. NEXIUM [Suspect]
     Active Substance: ESOMEPRAZOLE MAGNESIUM
     Indication: GASTROOESOPHAGEAL REFLUX DISEASE
     Dosage: GENERIC40.0MG UNKNOWN
     Route: 065
     Dates: start: 2016, end: 2017
  17. NEXIUM [Suspect]
     Active Substance: ESOMEPRAZOLE MAGNESIUM
     Indication: GASTROOESOPHAGEAL REFLUX DISEASE
     Dosage: 40.0MG UNKNOWN
     Route: 048
     Dates: start: 2004, end: 2015
  18. PROTONIX [Suspect]
     Active Substance: PANTOPRAZOLE SODIUM
     Indication: GASTROOESOPHAGEAL REFLUX DISEASE
     Route: 065
     Dates: start: 2002, end: 2018
  19. CLOBETASOL [Concomitant]
     Active Substance: CLOBETASOL
  20. MUPIROCIN. [Concomitant]
     Active Substance: MUPIROCIN
  21. METHOCARBAMOL. [Concomitant]
     Active Substance: METHOCARBAMOL
  22. LORATADINE. [Concomitant]
     Active Substance: LORATADINE
  23. DOXAZOSIN [Concomitant]
     Active Substance: DOXAZOSIN MESYLATE
  24. ONDANSETRON [Concomitant]
     Active Substance: ONDANSETRON
     Indication: NAUSEA
  25. DOXYCYCLINE. [Concomitant]
     Active Substance: DOXYCYCLINE
  26. LYRICA [Concomitant]
     Active Substance: PREGABALIN
  27. PREDNISONE. [Concomitant]
     Active Substance: PREDNISONE
  28. LEVOTHYROXINE. [Concomitant]
     Active Substance: LEVOTHYROXINE
  29. LACTULOSE. [Concomitant]
     Active Substance: LACTULOSE
  30. NYSTATIN. [Concomitant]
     Active Substance: NYSTATIN
  31. NEXIUM [Suspect]
     Active Substance: ESOMEPRAZOLE MAGNESIUM
     Indication: GASTROOESOPHAGEAL REFLUX DISEASE
     Route: 048
     Dates: start: 2002, end: 2018
  32. LOSARTAN. [Concomitant]
     Active Substance: LOSARTAN
  33. ZEMPLAR [Concomitant]
     Active Substance: PARICALCITOL
  34. CEFDINIR. [Concomitant]
     Active Substance: CEFDINIR
  35. BENZONATATE. [Concomitant]
     Active Substance: BENZONATATE
  36. TRAMADOL. [Concomitant]
     Active Substance: TRAMADOL
  37. METOPROLOL TARTRATE. [Concomitant]
     Active Substance: METOPROLOL TARTRATE
  38. PROAIR HFA [Concomitant]
     Active Substance: ALBUTEROL SULFATE

REACTIONS (5)
  - Death [Fatal]
  - Renal failure [Unknown]
  - Chronic kidney disease [Recovered/Resolved]
  - End stage renal disease [Recovered/Resolved]
  - Nephrogenic anaemia [Unknown]
